FAERS Safety Report 5046018-X (Version None)
Quarter: 2006Q2

REPORT INFORMATION
  Report Type: 
  Country: None (occurrence: None)
  Receive Date: 20060629
  Receipt Date: 20060619
  Transmission Date: 20061013
  Serious: Yes (Disabling, Other)
  Sender: FDA-Public Use
  Company Number: 2006057179

PATIENT
  Age: 47 Year
  Sex: Male
  Weight: 86.637 kg

DRUGS (7)
  1. VIRACEPT [Suspect]
     Indication: HIV INFECTION
     Dosage: 2500 MG (625 MG, 2 IN 1 D), ORAL
     Route: 048
  2. ZERIT [Suspect]
     Indication: HIV INFECTION
     Dosage: 2 CAPSULE (40 MG, 2 IN 1 D), ORAL
     Route: 048
     Dates: end: 20030801
  3. VIDEX [Suspect]
     Indication: HIV INFECTION
     Dosage: (350 MG, 1 IN 1 D), ORAL
     Route: 048
  4. EPIVIR [Suspect]
     Indication: HIV INFECTION
  5. VIREAD [Suspect]
     Indication: HIV INFECTION
  6. ANTIHYPERTENSIVES (ANTIHYPERTENSIVES) [Suspect]
     Indication: HYPERTENSION
     Dates: start: 20030101
  7. CENTRUM (MINERALS NOS, VITAMINS NOS) [Concomitant]

REACTIONS (16)
  - BALANCE DISORDER [None]
  - BLOOD CHOLESTEROL INCREASED [None]
  - BLOOD TRIGLYCERIDES INCREASED [None]
  - DISORIENTATION [None]
  - DISTURBANCE IN ATTENTION [None]
  - FATIGUE [None]
  - HEPATITIS [None]
  - HYPERTENSION [None]
  - IMPAIRED WORK ABILITY [None]
  - LOSS OF EMPLOYMENT [None]
  - MEMORY IMPAIRMENT [None]
  - MYOCARDIAL ISCHAEMIA [None]
  - PANCREATITIS [None]
  - SOMNOLENCE [None]
  - STRESS [None]
  - VISUAL DISTURBANCE [None]
